FAERS Safety Report 4412833-6 (Version None)
Quarter: 2004Q3

REPORT INFORMATION
  Report Type: 
  Country: None (occurrence: None)
  Receive Date: 20040730
  Receipt Date: 20040730
  Transmission Date: 20050211
  Serious: Yes (Other)
  Sender: FDA-Public Use
  Company Number: None

PATIENT
  Sex: Male
  Weight: 3.6288 kg

DRUGS (6)
  1. CHLORALHYDRATE 100 MG/KG - 250 MG- 250MG/ 5ML [Suspect]
     Indication: NUCLEAR MAGNETIC RESONANCE IMAGING
     Dosage: 250 MG ONE TIME D ORAL
     Route: 048
     Dates: start: 20040326, end: 20040326
  2. CHLORALHYDRATE 100 MG/KG - 250 MG- 250MG/ 5ML [Suspect]
     Indication: SEDATION
     Dosage: 250 MG ONE TIME D ORAL
     Route: 048
     Dates: start: 20040326, end: 20040326
  3. PENICILLIN G [Concomitant]
  4. AMPICILLIN [Concomitant]
  5. GENTAMYCIN SULFATE [Concomitant]
  6. ERYTHROMYCIN [Concomitant]

REACTIONS (2)
  - BLOOD PRESSURE DECREASED [None]
  - HYPOTHERMIA [None]
